FAERS Safety Report 14338070 (Version 1)
Quarter: 2017Q4

REPORT INFORMATION
  Report Type: Report from Study
  Country: US (occurrence: US)
  Receive Date: 20171229
  Receipt Date: 20171229
  Transmission Date: 20180321
  Serious: No
  Sender: FDA-Public Use
  Company Number: PHEH2017US041735

PATIENT
  Age: 59 Year
  Sex: Female

DRUGS (5)
  1. SOLU-MEDROL [Concomitant]
     Active Substance: METHYLPREDNISOLONE SODIUM SUCCINATE
     Indication: HYPOAESTHESIA
     Dosage: (3 DAYS) UNK
     Route: 042
  2. SOLU-MEDROL [Concomitant]
     Active Substance: METHYLPREDNISOLONE SODIUM SUCCINATE
     Indication: FATIGUE
  3. PREDNISONE. [Concomitant]
     Active Substance: PREDNISONE
     Indication: HYPOAESTHESIA
     Dosage: (6 DAYS)
     Route: 048
  4. GILENYA [Suspect]
     Active Substance: FINGOLIMOD HYDROCHLORIDE
     Indication: MULTIPLE SCLEROSIS
     Dosage: 0.5 MG, QD
     Route: 048
     Dates: start: 20170412
  5. PREDNISONE. [Concomitant]
     Active Substance: PREDNISONE
     Indication: FATIGUE

REACTIONS (2)
  - Hypoaesthesia [Recovered/Resolved]
  - Fatigue [Recovered/Resolved]

NARRATIVE: CASE EVENT DATE: 20171030
